FAERS Safety Report 21472554 (Version 1)
Quarter: 2022Q4

REPORT INFORMATION
  Report Type: Spontaneous
  Country: US (occurrence: US)
  Receive Date: 20221018
  Receipt Date: 20221018
  Transmission Date: 20230113
  Serious: No
  Sender: FDA-Public Use
  Company Number: US-SA-SAC20221013000276

PATIENT
  Sex: Male
  Weight: 85.261 kg

DRUGS (1)
  1. CERDELGA [Suspect]
     Active Substance: ELIGLUSTAT
     Indication: Fabry^s disease
     Dosage: 84 MG, BID
     Route: 048
     Dates: start: 201511

REACTIONS (2)
  - Weight increased [Unknown]
  - Product use in unapproved indication [Unknown]
